FAERS Safety Report 9596650 (Version 1)
Quarter: 2013Q4

REPORT INFORMATION
  Report Type: Spontaneous
  Country: GB (occurrence: GB)
  Receive Date: 20131004
  Receipt Date: 20131004
  Transmission Date: 20140711
  Serious: Yes (Hospitalization, Other)
  Sender: FDA-Public Use
  Company Number: PHHY2013GB110371

PATIENT
  Age: 33 Year
  Sex: Female

DRUGS (6)
  1. DIAMORPHINE HYDROCHLORIDE [Suspect]
     Dosage: 2.5 MG, UNK
     Route: 008
  2. DICLOFENAC [Suspect]
  3. PARACETAMOL [Suspect]
  4. LEVOBUPIVACAINE [Suspect]
     Dosage: 0.1 %, UNK
     Route: 008
  5. LEVOBUPIVACAINE [Suspect]
     Dosage: 0.5 %, UNK
  6. FENTANYL [Suspect]
     Dosage: 2 UG/ML, UNK
     Route: 008

REACTIONS (6)
  - Psychotic disorder [Recovered/Resolved]
  - Abnormal behaviour [Recovered/Resolved]
  - Hypersensitivity [Unknown]
  - Pruritus [Unknown]
  - Incorrect route of drug administration [Unknown]
  - Exposure during pregnancy [Unknown]
